FAERS Safety Report 15497697 (Version 1)
Quarter: 2018Q4

REPORT INFORMATION
  Report Type: Spontaneous
  Country: GB (occurrence: GB)
  Receive Date: 20181015
  Receipt Date: 20181015
  Transmission Date: 20190205
  Serious: Yes (Death, Other)
  Sender: FDA-Public Use
  Company Number: GB-ACCORD-073092

PATIENT
  Age: 48 Year
  Sex: Male

DRUGS (1)
  1. CAPECITABINE. [Suspect]
     Active Substance: CAPECITABINE
     Indication: CHEMOTHERAPY

REACTIONS (5)
  - Myocardial infarction [Fatal]
  - Upper respiratory tract infection [Unknown]
  - Arteriospasm coronary [Unknown]
  - Atrial fibrillation [Unknown]
  - Musculoskeletal pain [Unknown]
